FAERS Safety Report 22987970 (Version 2)
Quarter: 2023Q4

REPORT INFORMATION
  Report Type: Spontaneous
  Country: US (occurrence: US)
  Receive Date: 20230926
  Receipt Date: 20231103
  Transmission Date: 20240110
  Serious: No
  Sender: FDA-Public Use
  Company Number: US-Vifor (International) Inc.-VIT-2023-07045

PATIENT
  Age: 61 Year
  Sex: Male
  Weight: 96.4 kg

DRUGS (12)
  1. MIRCERA [Suspect]
     Active Substance: METHOXY POLYETHYLENE GLYCOL-EPOETIN BETA
     Indication: Product used for unknown indication
     Dosage: MIRCERA DOSE NUMBER: 01. DOSE CATEGORY: DOSE 1.
     Route: 040
     Dates: start: 20230811, end: 20230811
  2. CALCITRIOL [Concomitant]
     Active Substance: CALCITRIOL
     Route: 048
  3. ATORVASTATIN [Concomitant]
     Active Substance: ATORVASTATIN
  4. CARVEDILOL [Concomitant]
     Active Substance: CARVEDILOL
  5. CEFUROXIME AXETIL [Concomitant]
     Active Substance: CEFUROXIME AXETIL
     Dosage: TAKE 2 TABLET BY MOUTH EVERY 24 HOURS
     Route: 048
  6. CLONIDINE HYDROCHLORIDE [Concomitant]
     Active Substance: CLONIDINE HYDROCHLORIDE
  7. NIFEDIPINE EXTENDED RELEASE TABLETS (III) [Concomitant]
     Dosage: TAKE 1 TABLET BY MOUTH ONCE A DAY
     Route: 048
  8. NOVOLOG [Concomitant]
     Active Substance: INSULIN ASPART
     Dosage: 8 UNIT SUBCUTANEOUSLY THREE TIMES A DAY
     Route: 058
  9. PREGABALIN [Concomitant]
     Active Substance: PREGABALIN
  10. SEVELAMER HYDROCHLORIDE [Concomitant]
     Active Substance: SEVELAMER HYDROCHLORIDE
     Dosage: TAKE 2 TABLET BY MOUTH AS DIRECTED WITH MEALS. TAKE 2 TABLETS WITH MEALS THREE TIMES A DAY. 1 TABLET
     Route: 048
  11. TORSEMIDE [Concomitant]
     Active Substance: TORSEMIDE
     Route: 048
  12. TRESIBA [Concomitant]
     Active Substance: INSULIN DEGLUDEC
     Dosage: 56 UNIT (200 UNIT/ML)
     Route: 058

REACTIONS (2)
  - Drug hypersensitivity [Recovered/Resolved]
  - Dyspnoea [Recovered/Resolved]

NARRATIVE: CASE EVENT DATE: 20230811
